FAERS Safety Report 20663431 (Version 1)
Quarter: 2022Q1

REPORT INFORMATION
  Report Type: Spontaneous
  Country: US (occurrence: None)
  Receive Date: 20220331
  Receipt Date: 20220331
  Transmission Date: 20220423
  Serious: Yes (unspecified)
  Sender: FDA-Public Use
  Company Number: None

PATIENT
  Age: 47 Year
  Sex: Male
  Weight: 83.7 kg

DRUGS (3)
  1. IMATINIB MESYLATE [Suspect]
     Active Substance: IMATINIB MESYLATE
     Indication: Leukaemia
     Dosage: FREQUENCY : AT BEDTIME;?
     Route: 048
     Dates: start: 20220325, end: 20220328
  2. ATORVASTATIN [Concomitant]
     Active Substance: ATORVASTATIN
  3. Elderberry gummies with vitamin C [Concomitant]

REACTIONS (9)
  - Product substitution issue [None]
  - Vomiting [None]
  - Diarrhoea [None]
  - Dehydration [None]
  - Weight decreased [None]
  - Product odour abnormal [None]
  - Renal function test abnormal [None]
  - Fluid intake reduced [None]
  - Impaired work ability [None]

NARRATIVE: CASE EVENT DATE: 20220326
